FAERS Safety Report 7483749-6 (Version None)
Quarter: 2011Q2

REPORT INFORMATION
  Report Type: 
  Country: None (occurrence: None)
  Receive Date: 20110517
  Receipt Date: 20110503
  Transmission Date: 20111010
  Serious: Yes (Hospitalization, Other)
  Sender: FDA-Public Use
  Company Number: US-ELI_LILLY_AND_COMPANY-US201006002639

PATIENT
  Sex: Female

DRUGS (15)
  1. FORTEO [Suspect]
     Dosage: 20 UG, QD
  2. ADVAIR DISKUS 100/50 [Concomitant]
  3. AMBIEN [Concomitant]
  4. DARVOCET [Concomitant]
  5. CALTRATE + D [Concomitant]
  6. ALBUTEROL [Concomitant]
  7. PHENERGAN HCL [Concomitant]
  8. METOPROLOL SUCCINATE [Concomitant]
  9. SYNTHROID [Concomitant]
  10. PERCOCET [Concomitant]
  11. POTASSIUM CHLORIDE [Concomitant]
  12. VITAMIN D [Concomitant]
  13. FORTEO [Suspect]
     Indication: OSTEOPOROSIS
     Dosage: 20 UG, DAILY (1/D)
     Dates: start: 20100126
  14. FORTEO [Suspect]
     Dosage: 20 UG, DAILY (1/D)
  15. AMITRIPTYLINE HCL [Concomitant]

REACTIONS (12)
  - MALAISE [None]
  - INJECTION SITE PAIN [None]
  - ILL-DEFINED DISORDER [None]
  - PAIN IN EXTREMITY [None]
  - EATING DISORDER [None]
  - PAIN [None]
  - BODY HEIGHT DECREASED [None]
  - DYSPNOEA [None]
  - WEIGHT DECREASED [None]
  - BONE PAIN [None]
  - INSOMNIA [None]
  - RIB FRACTURE [None]
